FAERS Safety Report 9421370 (Version 2)
Quarter: 2013Q3

REPORT INFORMATION
  Report Type: Report from Study
  Country: US (occurrence: US)
  Receive Date: 20130725
  Receipt Date: 20130823
  Transmission Date: 20140515
  Serious: Yes (Hospitalization, Other)
  Sender: FDA-Public Use
  Company Number: US-US-EMD SERONO, INC.-7120615

PATIENT
  Sex: Male

DRUGS (3)
  1. SEROSTIM [(SOMATROPIN (RDNA ORIGIN) FOR INJECTION)] [Suspect]
     Indication: HIV WASTING SYNDROME
     Route: 058
     Dates: start: 2009
  2. SEROSTIM [(SOMATROPIN (RDNA ORIGIN) FOR INJECTION)] [Suspect]
     Route: 058
     Dates: start: 20120201
  3. HYDROCORTISON                      /00028601/ [Concomitant]
     Indication: PRODUCT USED FOR UNKNOWN INDICATION

REACTIONS (4)
  - Cholelithiasis [Unknown]
  - Arthropathy [Unknown]
  - Lower respiratory tract infection [Recovering/Resolving]
  - Drug interaction [Unknown]
